FAERS Safety Report 7549073-8 (Version None)
Quarter: 2011Q2

REPORT INFORMATION
  Report Type: 
  Country: None (occurrence: None)
  Receive Date: 20110615
  Receipt Date: 20110606
  Transmission Date: 20111010
  Serious: Yes (Hospitalization, Other)
  Sender: FDA-Public Use
  Company Number: JP-PFIZER INC-2011087863

PATIENT
  Age: 78 Year
  Sex: Female
  Weight: 60 kg

DRUGS (17)
  1. MAGMITT [Concomitant]
     Dosage: UNK
     Dates: end: 20110416
  2. LYRICA [Suspect]
     Indication: SPINAL CORD INJURY
  3. ALOSENN [Concomitant]
     Dosage: UNK
     Dates: end: 20110416
  4. NICORANDIL [Concomitant]
     Dosage: UNK
     Dates: end: 20110420
  5. FUROSEMIDE [Concomitant]
     Dosage: UNK
     Dates: end: 20110416
  6. CELECOXIB [Suspect]
     Indication: SPINAL COMPRESSION FRACTURE
     Dosage: 200 MG, BID
     Route: 048
     Dates: start: 20090319, end: 20110416
  7. CELECOXIB [Suspect]
     Indication: SPINAL CORD INJURY
  8. MUCOSTA [Concomitant]
     Dosage: UNK
     Route: 065
     Dates: end: 20110416
  9. NERIPROCT [Concomitant]
     Dosage: UNK
  10. LYRICA [Suspect]
     Indication: SPINAL COMPRESSION FRACTURE
     Dosage: 75 MG 1X/DAY
     Route: 048
     Dates: start: 20110404, end: 20110416
  11. PROGRAF [Suspect]
     Indication: RHEUMATOID VASCULITIS
     Dosage: 0.5 MG, 1X/DAY
     Route: 048
     Dates: start: 20110404, end: 20110420
  12. PREDNISOLONE [Concomitant]
     Dosage: UNK
     Route: 065
     Dates: end: 20110420
  13. RIZE [Concomitant]
     Dosage: UNK
     Dates: end: 20110416
  14. RABEPRAZOLE SODIUM [Suspect]
     Dosage: 20 MG
     Route: 048
     Dates: end: 20110416
  15. TOYOFAROL [Concomitant]
     Dosage: UNK
     Dates: end: 20110416
  16. CALCIUM POLYSTYRENE SULFONATE [Concomitant]
     Dosage: UNK
     Dates: end: 20110416
  17. SIGMART [Concomitant]
     Route: 065

REACTIONS (8)
  - BLOOD PRESSURE DECREASED [None]
  - SEPSIS [None]
  - PNEUMONIA [None]
  - OXYGEN SATURATION DECREASED [None]
  - AGRANULOCYTOSIS [None]
  - COMA [None]
  - STOMATITIS [None]
  - PLATELET COUNT DECREASED [None]
